FAERS Safety Report 6820068-2 (Version None)
Quarter: 2010Q3

REPORT INFORMATION
  Report Type: 
  Country: None (occurrence: None)
  Receive Date: 20100707
  Receipt Date: 20100629
  Transmission Date: 20110219
  Serious: Yes (Hospitalization)
  Sender: FDA-Public Use
  Company Number: B0660976A

PATIENT
  Sex: Male

DRUGS (4)
  1. SERETIDE [Suspect]
     Indication: ASTHMA
     Dosage: 4IUAX PER DAY
     Route: 055
  2. SERETIDE [Suspect]
     Indication: PRODUCT USED FOR UNKNOWN INDICATION
     Dosage: 70BRTH PER DAY
     Route: 055
     Dates: start: 20100605, end: 20100605
  3. ONON [Concomitant]
     Indication: ASTHMA
     Dosage: 7.5G PER DAY
     Route: 048
     Dates: start: 20100605, end: 20100605
  4. EPINASTINE [Concomitant]
     Dosage: 200MG PER DAY
     Route: 048
     Dates: start: 20100605, end: 20100605

REACTIONS (9)
  - ASTHENIA [None]
  - BLOOD PRESSURE DECREASED [None]
  - HYPOAESTHESIA [None]
  - HYPOKALAEMIA [None]
  - NAUSEA [None]
  - OVERDOSE [None]
  - PALLOR [None]
  - TACHYCARDIA [None]
  - VOMITING [None]
